FAERS Safety Report 10228019 (Version 1)
Quarter: 2014Q2

REPORT INFORMATION
  Report Type: Spontaneous
  Country: US (occurrence: None)
  Receive Date: 20140606
  Receipt Date: 20140606
  Transmission Date: 20141212
  Serious: Yes (Hospitalization)
  Sender: FDA-Public Use
  Company Number: 2014STPI000231

PATIENT
  Age: 19 Year
  Sex: Female

DRUGS (2)
  1. CYSTARAN [Suspect]
     Indication: PRODUCT USED FOR UNKNOWN INDICATION
     Dosage: 1 GTT QH, OPTHALMIC
     Route: 047
     Dates: start: 20130613
  2. PROCYSBI [Concomitant]

REACTIONS (1)
  - Nonspecific reaction [None]
